FAERS Safety Report 25581217 (Version 1)
Quarter: 2025Q3

REPORT INFORMATION
  Report Type: Spontaneous
  Country: US (occurrence: US)
  Receive Date: 20250718
  Receipt Date: 20250718
  Transmission Date: 20251020
  Serious: No
  Sender: NOVO NORDISK
  Company Number: US-NOVOPROD-1363903

PATIENT
  Age: 64 Year
  Sex: Female

DRUGS (2)
  1. WEGOVY [Suspect]
     Active Substance: SEMAGLUTIDE
     Indication: Arthralgia
     Route: 058
  2. WEGOVY [Suspect]
     Active Substance: SEMAGLUTIDE
     Indication: Hypertension
     Route: 058
     Dates: start: 202203

REACTIONS (4)
  - Blood pressure increased [Not Recovered/Not Resolved]
  - Joint stiffness [Not Recovered/Not Resolved]
  - Joint swelling [Not Recovered/Not Resolved]
  - Off label use [Unknown]

NARRATIVE: CASE EVENT DATE: 20240901
